FAERS Safety Report 6489467-5 (Version None)
Quarter: 2009Q4

REPORT INFORMATION
  Report Type: 
  Country: None (occurrence: None)
  Receive Date: 20091210
  Receipt Date: 20091008
  Transmission Date: 20100525
  Serious: No
  Sender: FDA-Public Use
  Company Number: US-AMGEN-KDL368374

PATIENT
  Sex: Female

DRUGS (1)
  1. ENBREL [Suspect]
     Indication: SJOGREN'S SYNDROME
     Route: 058
     Dates: start: 20060301

REACTIONS (4)
  - FALL [None]
  - JOINT INJURY [None]
  - NODULE ON EXTREMITY [None]
  - PAIN [None]
